FAERS Safety Report 9400363 (Version 1)
Quarter: 2013Q3

REPORT INFORMATION
  Report Type: Spontaneous
  Country: US (occurrence: None)
  Receive Date: 20130712
  Receipt Date: 20130712
  Transmission Date: 20140515
  Serious: No
  Sender: FDA-Public Use
  Company Number: None

PATIENT
  Age: 71 None
  Sex: Female
  Weight: 77.11 kg

DRUGS (4)
  1. AMLODIPINE BESYLATE [Suspect]
     Indication: HYPERTENSION
     Dates: start: 20130520, end: 20130527
  2. LOSARTAN [Concomitant]
  3. ASPIRIN [Concomitant]
  4. CENTRUM SILVER MUTIVILTAMIN [Concomitant]

REACTIONS (2)
  - Pain in extremity [None]
  - Hypoaesthesia [None]
